FAERS Safety Report 18583984 (Version 1)
Quarter: 2020Q4

REPORT INFORMATION
  Report Type: Spontaneous
  Country: US (occurrence: US)
  Receive Date: 20201207
  Receipt Date: 20201207
  Transmission Date: 20210114
  Serious: No
  Sender: FDA-Public Use
  Company Number: US-AMGEN-USASP2020196141

PATIENT
  Sex: Female

DRUGS (2)
  1. NPLATE [Suspect]
     Active Substance: ROMIPLOSTIM
     Indication: IMMUNE THROMBOCYTOPENIA
     Dosage: UNK UNK, QWK
     Route: 065
     Dates: start: 2020
  2. NPLATE [Suspect]
     Active Substance: ROMIPLOSTIM
     Dosage: DOSE INCREASED
     Route: 065
     Dates: start: 20201201

REACTIONS (3)
  - Product dose omission issue [Unknown]
  - Platelet count decreased [Unknown]
  - Therapy non-responder [Unknown]

NARRATIVE: CASE EVENT DATE: 2020
